FAERS Safety Report 7225723-0 (Version None)
Quarter: 2011Q1

REPORT INFORMATION
  Report Type: 
  Country: None (occurrence: None)
  Receive Date: 20110110
  Receipt Date: 20110110
  Transmission Date: 20110831
  Serious: No
  Sender: FDA-Public Use
  Company Number: None

PATIENT
  Age: 32 Year
  Sex: Female
  Weight: 61.2356 kg

DRUGS (3)
  1. CLONAZEPAM [Suspect]
     Indication: SOMNOLENCE
     Dosage: .5 OR 1 MG ONCE A DAY PO
     Route: 048
     Dates: start: 20100601, end: 20110101
  2. TOPAMAX [Concomitant]
  3. LEVROTHYROID [Concomitant]

REACTIONS (2)
  - SUDDEN HEARING LOSS [None]
  - DEAFNESS NEUROSENSORY [None]
